FAERS Safety Report 5736123-4 (Version None)
Quarter: 2008Q2

REPORT INFORMATION
  Report Type: 
  Country: None (occurrence: None)
  Receive Date: 20080509
  Receipt Date: 20080429
  Transmission Date: 20081010
  Serious: Yes (Other)
  Sender: FDA-Public Use
  Company Number: 2008BI004461

PATIENT
  Age: 68 Year
  Sex: Female

DRUGS (1)
  1. AVONEX [Suspect]
     Indication: MULTIPLE SCLEROSIS
     Dosage: IM
     Route: 030
     Dates: start: 20011026, end: 20070324

REACTIONS (3)
  - METASTASES TO BONE [None]
  - METASTASES TO LUNG [None]
  - PRIMITIVE NEUROECTODERMAL TUMOUR [None]
